FAERS Safety Report 5492002-1 (Version None)
Quarter: 2007Q4

REPORT INFORMATION
  Report Type: 
  Country: None (occurrence: None)
  Receive Date: 20071022
  Receipt Date: 20071010
  Transmission Date: 20080405
  Serious: Yes (Hospitalization)
  Sender: FDA-Public Use
  Company Number: B0490622A

PATIENT
  Age: 73 Year
  Sex: Male

DRUGS (6)
  1. REQUIP [Suspect]
     Dosage: 3TAB PER DAY
     Route: 048
     Dates: end: 20070101
  2. MODOPAR [Suspect]
     Dosage: 250MG PER DAY
     Route: 048
  3. APOMORPHINE HYDROCHLORIDE [Suspect]
     Dosage: 2.5MG PER DAY
     Route: 058
     Dates: start: 20050901, end: 20070703
  4. PAROXETINE [Concomitant]
     Route: 065
  5. MODOPAR [Concomitant]
     Dosage: 125MG PER DAY
     Route: 048
  6. MODOPAR [Concomitant]
     Dosage: 625MG PER DAY
     Route: 048

REACTIONS (7)
  - ASTHENIA [None]
  - BLOOD BILIRUBIN INCREASED [None]
  - BLOOD LACTATE DEHYDROGENASE INCREASED [None]
  - CONFUSIONAL STATE [None]
  - HAEMOLYTIC ANAEMIA [None]
  - SPLENOMEGALY [None]
  - TRANCE [None]
